FAERS Safety Report 4399881-X (Version None)
Quarter: 2004Q3

REPORT INFORMATION
  Report Type: 
  Country: None (occurrence: None)
  Receive Date: 20040716
  Receipt Date: 20040628
  Transmission Date: 20050211
  Serious: Yes (Hospitalization)
  Sender: FDA-Public Use
  Company Number: GB-JNJFOC-20040607996

PATIENT
  Age: 8 Year
  Sex: Male

DRUGS (5)
  1. RISPERDAL [Suspect]
     Indication: ABNORMAL BEHAVIOUR
     Dosage: SEE IMAGE
     Dates: end: 20040201
  2. RISPERDAL [Suspect]
     Indication: ABNORMAL BEHAVIOUR
     Dosage: SEE IMAGE
     Dates: start: 20040201, end: 20040501
  3. RISPERDAL [Suspect]
     Indication: ABNORMAL BEHAVIOUR
     Dosage: SEE IMAGE
     Dates: start: 20040501
  4. FLUORIDE (DROPS) FLUORIDE) [Concomitant]
  5. PARACETAMOL (PARACETAMOL) [Concomitant]

REACTIONS (3)
  - ABNORMAL BEHAVIOUR [None]
  - CONDITION AGGRAVATED [None]
  - PHOTOSENSITIVE RASH [None]
